FAERS Safety Report 8600929-4 (Version None)
Quarter: 2012Q3

REPORT INFORMATION
  Report Type: 
  Country: None (occurrence: None)
  Receive Date: 20120817
  Receipt Date: 20120808
  Transmission Date: 20120928
  Serious: Yes (Death)
  Sender: FDA-Public Use
  Company Number: CN-SANOFI-AVENTIS-2012SA033121

PATIENT
  Age: 77 Year
  Sex: Male
  Weight: 58 kg

DRUGS (7)
  1. SULBENICILLIN [Concomitant]
     Route: 042
     Dates: start: 20120501, end: 20120508
  2. AMBROXOL [Concomitant]
     Route: 042
     Dates: start: 20120502, end: 20120508
  3. TAXOTERE [Suspect]
     Indication: PROSTATE CANCER METASTATIC
     Route: 042
     Dates: start: 20120503, end: 20120503
  4. PREDNISONE TAB [Concomitant]
     Route: 048
     Dates: start: 20120503, end: 20120508
  5. DEXAMETHASONE [Concomitant]
     Route: 065
     Dates: start: 20120502, end: 20120502
  6. INSULIN [Concomitant]
     Indication: TYPE 2 DIABETES MELLITUS
  7. DEXAMETHASONE [Concomitant]
     Route: 065
     Dates: start: 20120503, end: 20120503

REACTIONS (1)
  - MULTI-ORGAN FAILURE [None]
